FAERS Safety Report 23719803 (Version 3)
Quarter: 2024Q2

REPORT INFORMATION
  Report Type: Report from Study
  Country: US (occurrence: US)
  Receive Date: 20240408
  Receipt Date: 20240517
  Transmission Date: 20240715
  Serious: Yes (Other)
  Sender: FDA-Public Use
  Company Number: US-ARGENX-2024-ARGX-US001243

PATIENT

DRUGS (1)
  1. VYVGART [Suspect]
     Active Substance: EFGARTIGIMOD ALFA-FCAB
     Indication: Myasthenia gravis
     Dosage: UNK
     Route: 042

REACTIONS (8)
  - Epididymitis [Recovered/Resolved]
  - Pneumonia [Recovered/Resolved]
  - Myasthenia gravis [Unknown]
  - Sinus disorder [Unknown]
  - Feeling abnormal [Unknown]
  - Symptom recurrence [Unknown]
  - COVID-19 [Recovered/Resolved]
  - Therapeutic product effect decreased [Unknown]

NARRATIVE: CASE EVENT DATE: 20240404
